FAERS Safety Report 8567693-9 (Version None)
Quarter: 2012Q3

REPORT INFORMATION
  Report Type: 
  Country: None (occurrence: None)
  Receive Date: 20120803
  Receipt Date: 20120723
  Transmission Date: 20120928
  Serious: Yes (Hospitalization)
  Sender: FDA-Public Use
  Company Number: JP-ELI_LILLY_AND_COMPANY-JP201207005244

PATIENT
  Age: 1 Month

DRUGS (2)
  1. ZYPREXA [Suspect]
     Dosage: UNK
     Route: 064
     Dates: end: 20120101
  2. ZYPREXA [Suspect]
     Dosage: UNK
     Route: 064
     Dates: end: 20120101

REACTIONS (3)
  - NEONATAL RESPIRATORY ARREST [None]
  - FOETAL EXPOSURE DURING PREGNANCY [None]
  - CONVULSION NEONATAL [None]
